FAERS Safety Report 4428670-2 (Version None)
Quarter: 2004Q3

REPORT INFORMATION
  Report Type: 
  Country: None (occurrence: None)
  Receive Date: 20040818
  Receipt Date: 20031006
  Transmission Date: 20050211
  Serious: No
  Sender: FDA-Public Use
  Company Number: US-BRISTOL-MYERS SQUIBB COMPANY-12403721

PATIENT
  Age: 43 Year
  Sex: Female

DRUGS (3)
  1. TEQUIN [Suspect]
     Route: 048
     Dates: start: 20030919, end: 20030901
  2. ZITHROMAX [Concomitant]
  3. ALBUTEROL [Concomitant]
     Route: 055

REACTIONS (3)
  - ORAL PAIN [None]
  - STOMATITIS [None]
  - SWELLING FACE [None]
